FAERS Safety Report 8888672 (Version 1)
Quarter: 2012Q4

REPORT INFORMATION
  Report Type: 
  Country: US (occurrence: US)
  Receive Date: 20121106
  Receipt Date: 20121106
  Transmission Date: 20130627
  Serious: Yes (Other)
  Sender: FDA-Public Use
  Company Number: US-GLAXOSMITHKLINE-A0999582A

PATIENT
  Sex: Female

DRUGS (4)
  1. ADVAIR [Suspect]
     Indication: PRODUCT USED FOR UNKNOWN INDICATION
     Route: 055
  2. LUNESTA [Concomitant]
  3. WARFARIN [Concomitant]
  4. METOPROLOL [Concomitant]

REACTIONS (2)
  - Respiratory distress [Recovering/Resolving]
  - Respiratory disorder [Recovering/Resolving]
